FAERS Safety Report 17528652 (Version 2)
Quarter: 2020Q1

REPORT INFORMATION
  Report Type: Report from Study
  Country: US (occurrence: US)
  Receive Date: 20200311
  Receipt Date: 20200324
  Transmission Date: 20200409
  Serious: Yes (Other)
  Sender: FDA-Public Use
  Company Number: PHHY2018US056865

PATIENT
  Age: 34 Year
  Sex: Female
  Weight: 56.3 kg

DRUGS (2)
  1. LAMPRENE [Suspect]
     Active Substance: CLOFAZIMINE
     Dosage: UNK (DOSE REDUCED)
     Route: 048
     Dates: start: 20180407, end: 20180425
  2. LAMPRENE [Suspect]
     Active Substance: CLOFAZIMINE
     Indication: MYCOBACTERIAL INFECTION
     Dosage: 100 MG, QD (ON DRUG ABOUT 6 WEEKS)
     Route: 048
     Dates: start: 20180216

REACTIONS (4)
  - Deep vein thrombosis [Recovered/Resolved]
  - Vertigo [Recovered/Resolved]
  - Dizziness [Recovered/Resolved]
  - Skin discolouration [Recovered/Resolved]

NARRATIVE: CASE EVENT DATE: 20180228
